FAERS Safety Report 25545854 (Version 1)
Quarter: 2025Q3

REPORT INFORMATION
  Report Type: Spontaneous
  Country: CN (occurrence: CN)
  Receive Date: 20250712
  Receipt Date: 20250712
  Transmission Date: 20251021
  Serious: Yes (Other)
  Sender: AMGEN
  Company Number: CN-AMGEN-CHNSP2025132398

PATIENT
  Age: 31 Year
  Sex: Female

DRUGS (10)
  1. PROLIA [Suspect]
     Active Substance: DENOSUMAB
     Indication: Product used for unknown indication
     Route: 058
  2. CINACALCET HYDROCHLORIDE [Suspect]
     Active Substance: CINACALCET HYDROCHLORIDE
     Indication: Hyperparathyroidism primary
     Dosage: 75 MILLIGRAM, QD
     Route: 048
  3. CINACALCET HYDROCHLORIDE [Suspect]
     Active Substance: CINACALCET HYDROCHLORIDE
     Dosage: 100 MILLIGRAM, QD
     Route: 048
  4. CALCITONIN [Concomitant]
     Active Substance: CALCITONIN
     Dosage: 100 UNIT, Q8H
     Route: 058
  5. ZOLEDRONIC ACID [Concomitant]
     Active Substance: ZOLEDRONIC ACID
     Route: 040
  6. CATEQUENTINIB [Concomitant]
     Active Substance: CATEQUENTINIB
  7. CATEQUENTINIB [Concomitant]
     Active Substance: CATEQUENTINIB
  8. CAPECITABINE [Concomitant]
     Active Substance: CAPECITABINE
  9. CAPECITABINE [Concomitant]
     Active Substance: CAPECITABINE
  10. SINTILIMAB [Concomitant]
     Active Substance: SINTILIMAB

REACTIONS (2)
  - Parathyroid tumour malignant [Unknown]
  - Metastases to lung [Unknown]
